FAERS Safety Report 7705831-8 (Version None)
Quarter: 2011Q3

REPORT INFORMATION
  Report Type: 
  Country: None (occurrence: None)
  Receive Date: 20110824
  Receipt Date: 20110812
  Transmission Date: 20111222
  Serious: Yes (Death)
  Sender: FDA-Public Use
  Company Number: US-ELI_LILLY_AND_COMPANY-US201108004390

PATIENT
  Age: 79 Year
  Sex: Female

DRUGS (1)
  1. PROZAC [Suspect]
     Indication: RELAXATION THERAPY
     Dosage: UNK
     Dates: start: 19840101

REACTIONS (2)
  - DEMENTIA ALZHEIMER'S TYPE [None]
  - OFF LABEL USE [None]
